FAERS Safety Report 4347998-8 (Version None)
Quarter: 2004Q2

REPORT INFORMATION
  Report Type: 
  Country: None (occurrence: None)
  Receive Date: 20040422
  Receipt Date: 20040413
  Transmission Date: 20050107
  Serious: Yes (Hospitalization)
  Sender: FDA-Public Use
  Company Number: 2004208883FR

PATIENT
  Age: 72 Year
  Sex: Female

DRUGS (6)
  1. CELEBREX [Suspect]
     Dosage: 200 MG, BID, ORAL
     Route: 048
     Dates: start: 20030715
  2. CLONAZEPAM [Suspect]
     Dosage: QID, ORAL
     Route: 048
     Dates: end: 20040102
  3. TRAMADOL HCL [Suspect]
     Dosage: 200 MG, BID, ORAL
     Route: 048
     Dates: start: 20031218, end: 20040102
  4. CAPTOPRIL AND HYDROCHLOROTHIAZIDE [Suspect]
     Dosage: 1 DF, QD, ORAL
     Route: 048
  5. REVIA [Suspect]
     Dosage: 50 MG, QD, ORAL
     Route: 048
  6. ZOLOFT [Suspect]
     Dosage: 50MG, BID, ORAL
     Route: 048
     Dates: start: 20031226

REACTIONS (7)
  - ANOREXIA [None]
  - ASTHENIA [None]
  - BALANCE DISORDER [None]
  - CONFUSIONAL STATE [None]
  - GENERAL PHYSICAL CONDITION ABNORMAL [None]
  - PAIN IN EXTREMITY [None]
  - SOMNOLENCE [None]
